FAERS Safety Report 9506430 (Version 1)
Quarter: 2013Q1

REPORT INFORMATION
  Report Type: Spontaneous
  Country: US (occurrence: None)
  Receive Date: 20130301
  Receipt Date: 20130301
  Transmission Date: 20140127
  Serious: Yes (Hospitalization)
  Sender: FDA-Public Use
  Company Number: US-JNJFOC-2003164072US

PATIENT
  Age: 48 Year
  Sex: Male

DRUGS (1)
  1. MOTRIN [Suspect]
     Indication: PYREXIA
     Dosage: OVER 3 DAYS
     Dates: start: 20010308, end: 20010310

REACTIONS (4)
  - Abscess intestinal [None]
  - Large intestine perforation [None]
  - Abdominal discomfort [None]
  - Eating disorder [None]
